FAERS Safety Report 5330413-5 (Version None)
Quarter: 2007Q2

REPORT INFORMATION
  Report Type: 
  Country: None (occurrence: None)
  Receive Date: 20070521
  Receipt Date: 20070516
  Transmission Date: 20071010
  Serious: Yes (Death, Other)
  Sender: FDA-Public Use
  Company Number: US-PFIZER INC-2007036259

PATIENT
  Age: 59 Year
  Sex: Female
  Weight: 63.5 kg

DRUGS (3)
  1. CHANTIX [Suspect]
     Indication: SMOKING CESSATION THERAPY
     Route: 048
  2. LISINOPRIL [Concomitant]
     Route: 048
     Dates: start: 20070123, end: 20070331
  3. RANITIDINE [Concomitant]
     Route: 048
     Dates: start: 20070123, end: 20070324

REACTIONS (1)
  - SUDDEN CARDIAC DEATH [None]
